FAERS Safety Report 20437335 (Version 1)
Quarter: 2022Q1

REPORT INFORMATION
  Report Type: Spontaneous
  Country: US (occurrence: None)
  Receive Date: 20220204
  Receipt Date: 20220204
  Transmission Date: 20220424
  Serious: Yes (Life-Threatening)
  Sender: FDA-Public Use
  Company Number: None

PATIENT
  Age: 17 Year
  Sex: Female

DRUGS (1)
  1. VANCOMYCIN HYDROCHLORIDE [Suspect]
     Active Substance: VANCOMYCIN HYDROCHLORIDE
     Indication: Drug hypersensitivity
     Dosage: 0.75MG EVERY DAY DWELL?
     Route: 048
     Dates: start: 20220121, end: 20220124

REACTIONS (6)
  - Anaphylactic reaction [None]
  - Pruritus [None]
  - Rash [None]
  - Rash erythematous [None]
  - Oxygen saturation decreased [None]
  - Throat tightness [None]

NARRATIVE: CASE EVENT DATE: 20220124
